FAERS Safety Report 10095509 (Version 2)
Quarter: 2014Q2

REPORT INFORMATION
  Report Type: Report from Study
  Country: JP (occurrence: JP)
  Receive Date: 20140422
  Receipt Date: 20140423
  Transmission Date: 20141212
  Serious: Yes (Hospitalization)
  Sender: FDA-Public Use
  Company Number: JP-PFIZER INC-2014109522

PATIENT
  Age: 51 Year
  Sex: Female
  Weight: 58.8 kg

DRUGS (16)
  1. SILDENAFIL CITRATE [Suspect]
     Indication: PULMONARY HYPERTENSION
     Dosage: 10 MG, 1X/DAY
     Route: 048
     Dates: start: 20110801, end: 20110906
  2. SILDENAFIL CITRATE [Suspect]
     Dosage: 10 MG, 1X/DAY
     Route: 048
     Dates: start: 20110913, end: 20110921
  3. SILDENAFIL CITRATE [Suspect]
     Dosage: 20 MG, 3X/DAY
     Route: 048
     Dates: start: 20110922
  4. SPIRONOLACTONE [Concomitant]
     Dosage: UNK
     Route: 048
     Dates: end: 20110906
  5. SPIRONOLACTONE [Concomitant]
     Dosage: UNK
     Route: 048
     Dates: start: 20110913
  6. TAKEPRON [Concomitant]
     Indication: GASTRITIS PROPHYLAXIS
     Dosage: UNK
     Route: 048
     Dates: start: 20110914
  7. THYRADIN S [Concomitant]
     Dosage: UNK
     Route: 048
     Dates: end: 20110906
  8. THYRADIN S [Concomitant]
     Dosage: UNK
     Route: 048
     Dates: start: 20110920
  9. SLOW K [Concomitant]
     Indication: ELECTROLYTE SUBSTITUTION THERAPY
     Dosage: UNK
     Route: 048
     Dates: end: 20110906
  10. SLOW K [Concomitant]
     Dosage: UNK
     Route: 048
     Dates: start: 20110927
  11. CIBENOL [Concomitant]
     Dosage: UNK
     Route: 048
     Dates: start: 20110918, end: 20110918
  12. CIBENOL [Concomitant]
     Dosage: UNK
     Route: 048
     Dates: start: 20111005
  13. VASOLAN [Concomitant]
     Dosage: UNK
     Route: 048
     Dates: start: 20110920, end: 20111005
  14. VASOLAN [Concomitant]
     Dosage: UNK
     Route: 048
     Dates: start: 20111006, end: 20111121
  15. WARFARIN [Concomitant]
     Indication: PULMONARY HYPERTENSION
     Dosage: UNK
     Route: 048
     Dates: end: 20110906
  16. WARFARIN [Concomitant]
     Dosage: UNK
     Route: 048

REACTIONS (1)
  - Haemoptysis [Recovered/Resolved]
